FAERS Safety Report 19118817 (Version 1)
Quarter: 2021Q2

REPORT INFORMATION
  Report Type: Report from Study
  Country: ES (occurrence: ES)
  Receive Date: 20210409
  Receipt Date: 20210409
  Transmission Date: 20210717
  Serious: Yes (Death, Other)
  Sender: FDA-Public Use
  Company Number: ES-BAXTER-2021BAX006855

PATIENT
  Age: 62 Year
  Sex: Male

DRUGS (13)
  1. CYCLOPHOSPHAMIDE. [Concomitant]
     Active Substance: CYCLOPHOSPHAMIDE
     Indication: GASTROINTESTINAL LYMPHOMA
     Dosage: 1ST TREATMENT
     Route: 065
  2. BLEOMYCIN [Concomitant]
     Active Substance: BLEOMYCIN SULFATE
     Indication: GASTROINTESTINAL LYMPHOMA
     Dosage: 1ST TREATMENT
     Route: 065
  3. VINCRISTINE [Suspect]
     Active Substance: VINCRISTINE
     Indication: GASTROINTESTINAL LYMPHOMA
     Dosage: 0.4 MG/M2/DAYX5
     Route: 041
  4. PREDNISONE. [Concomitant]
     Active Substance: PREDNISONE
     Indication: GASTROINTESTINAL LYMPHOMA
     Route: 065
  5. GENOXAL [Suspect]
     Active Substance: CYCLOPHOSPHAMIDE
     Indication: GASTROINTESTINAL LYMPHOMA
     Dosage: 750 MG/M2 ON 6TH DAY
     Route: 040
  6. ETOPOSIDE. [Suspect]
     Active Substance: ETOPOSIDE
     Indication: GASTROINTESTINAL LYMPHOMA
     Dosage: 50 MG/M2/DAY X 4
     Route: 041
  7. ETOPOSIDE. [Concomitant]
     Active Substance: ETOPOSIDE
     Indication: GASTROINTESTINAL LYMPHOMA
     Dosage: 1ST TREATMENT
     Route: 065
  8. METHOTREXATE. [Concomitant]
     Active Substance: METHOTREXATE
     Indication: GASTROINTESTINAL LYMPHOMA
     Dosage: 1ST TREATMENT
     Route: 065
  9. VINCRISTINE [Concomitant]
     Active Substance: VINCRISTINE
     Indication: GASTROINTESTINAL LYMPHOMA
     Dosage: 1ST TREATMENT
     Route: 065
  10. DOXORUBICIN [Suspect]
     Active Substance: DOXORUBICIN
     Indication: GASTROINTESTINAL LYMPHOMA
     Dosage: 10 MG/M2/DAY X5
     Route: 041
  11. PREDNISONE. [Suspect]
     Active Substance: PREDNISONE
     Indication: GASTROINTESTINAL LYMPHOMA
     Dosage: 60 MG/M2/DAY X14 ORALLY
     Route: 048
  12. DOXORUBICIN [Concomitant]
     Active Substance: DOXORUBICIN
     Indication: GASTROINTESTINAL LYMPHOMA
     Dosage: 1ST TREATMENT
     Route: 065
  13. CYTOSAR [Concomitant]
     Active Substance: CYTARABINE
     Indication: GASTROINTESTINAL LYMPHOMA
     Route: 065

REACTIONS (3)
  - Haemorrhage intracranial [Fatal]
  - Thrombocytopenia [Fatal]
  - Alopecia [Unknown]
